FAERS Safety Report 15221436 (Version 1)
Quarter: 2018Q3

REPORT INFORMATION
  Report Type: Spontaneous
  Country: JP (occurrence: JP)
  Receive Date: 20180731
  Receipt Date: 20180731
  Transmission Date: 20181010
  Serious: Yes (Other)
  Sender: FDA-Public Use
  Company Number: JP-BAUSCH-BL-2018-020240

PATIENT
  Sex: Male

DRUGS (4)
  1. MESALAZINE [Concomitant]
     Active Substance: MESALAMINE
     Indication: AMYLOIDOSIS
  2. PREDNISOLONE. [Suspect]
     Active Substance: PREDNISOLONE
     Dosage: INCREASED DOSE
     Route: 048
  3. COLCHICINE. [Concomitant]
     Active Substance: COLCHICINE
     Indication: AMYLOIDOSIS
     Route: 048
  4. PREDNISOLONE. [Suspect]
     Active Substance: PREDNISOLONE
     Indication: BEHCET^S SYNDROME
     Route: 048

REACTIONS (1)
  - Drug effect incomplete [Unknown]
